FAERS Safety Report 10420881 (Version 1)
Quarter: 2014Q3

REPORT INFORMATION
  Report Type: Spontaneous
  Country: US (occurrence: None)
  Receive Date: 20140714
  Receipt Date: 20140714
  Transmission Date: 20150326
  Serious: Yes (Other)
  Sender: FDA-Public Use
  Company Number: 2014US003168

PATIENT
  Age: 60 Year
  Sex: Male

DRUGS (22)
  1. MIRALAX (MACROGOL) POWDER [EXCEPT [DPO]) [Concomitant]
  2. COREG [Concomitant]
     Active Substance: CARVEDILOL
  3. ICLUSIG [Suspect]
     Active Substance: PONATINIB
     Indication: CHRONIC MYELOID LEUKAEMIA
     Route: 048
     Dates: start: 20140218
  4. ECOTRIN [Concomitant]
     Active Substance: ASPIRIN
  5. PRINIVIL (LISINOPRIL DIHYDRATE) [Concomitant]
  6. PROVENTIL (SALBUTAMOL SULFATE) [Concomitant]
  7. OPIOIDS [Suspect]
     Active Substance: UNSPECIFIED INGREDIENT
     Indication: PRODUCT USED FOR UNKNOWN INDICATION
  8. RITUXAN [Concomitant]
     Active Substance: RITUXIMAB
  9. LASIX [Concomitant]
     Active Substance: FUROSEMIDE
  10. PERCOCET (OXYCODONE HYDROCHLORIDE, PARACETAMOL) [Concomitant]
  11. SENOKOT (SENNOSIDE A+B) [Concomitant]
  12. CELEXA [Concomitant]
     Active Substance: CITALOPRAM HYDROBROMIDE
  13. PLAVIX [Concomitant]
     Active Substance: CLOPIDOGREL BISULFATE
  14. ZANTAC 9RANITIDINE HYDROCHLORIDE) [Concomitant]
  15. CLEOCIN (CLINDAMYCIN HYDROCHLORIDE) [Concomitant]
  16. TESSALON (BENZONATATE) [Concomitant]
  17. NITROSTAT (GLYCERYL TRINITRATE) [Concomitant]
  18. K-DUR [Concomitant]
     Active Substance: POTASSIUM CHLORIDE
  19. BACTROBAN (MUPIROCIN) OINTMENT, CREAM [Concomitant]
  20. ALDACTONE [Concomitant]
     Active Substance: SPIRONOLACTONE
  21. COLACE [Concomitant]
     Active Substance: DOCUSATE SODIUM
  22. ZOCOR [Concomitant]
     Active Substance: SIMVASTATIN

REACTIONS (4)
  - Depression [None]
  - Dry skin [None]
  - Constipation [None]
  - Intermittent claudication [None]

NARRATIVE: CASE EVENT DATE: 20140222
